FAERS Safety Report 15901551 (Version 1)
Quarter: 2019Q1

REPORT INFORMATION
  Report Type: Spontaneous
  Country: GB (occurrence: GB)
  Receive Date: 20190201
  Receipt Date: 20190201
  Transmission Date: 20190417
  Serious: Yes (Disabling)
  Sender: FDA-Public Use
  Company Number: GB-TEVA-2019-GB-1006690

PATIENT
  Age: 52 Year
  Sex: Male
  Weight: 122 kg

DRUGS (10)
  1. CLENIL MODULITE [Concomitant]
     Active Substance: BECLOMETHASONE DIPROPIONATE
     Dosage: 4 DOSAGE FORMS DAILY; PUFFS
     Route: 055
     Dates: start: 20180531
  2. RAMIPRIL. [Concomitant]
     Active Substance: RAMIPRIL
     Indication: HYPERTENSION
     Dosage: 1 DOSAGE FORMS DAILY; MORNING.
     Dates: start: 20181003
  3. NITROMIN [Concomitant]
     Dosage: PUFF
     Route: 060
     Dates: start: 20160701
  4. BISOPROLOL [Concomitant]
     Active Substance: BISOPROLOL
     Dosage: 1 DOSAGE FORMS DAILY;
     Dates: start: 20180702
  5. DOXAZOSIN [Suspect]
     Active Substance: DOXAZOSIN\DOXAZOSIN MESYLATE
     Indication: HYPERTENSION
     Dosage: 1 MILLIGRAM DAILY;
     Route: 065
     Dates: start: 20181217
  6. ATORVASTATIN [Concomitant]
     Active Substance: ATORVASTATIN
     Indication: HYPERCHOLESTEROLAEMIA
     Dosage: 1 DOSAGE FORMS DAILY;
     Dates: start: 20181003
  7. OMEPRAZOLE. [Concomitant]
     Active Substance: OMEPRAZOLE
     Indication: GASTRIC PH DECREASED
     Dosage: 2 DOSAGE FORMS DAILY;
     Dates: start: 20180531
  8. SALBUTAMOL [Concomitant]
     Active Substance: ALBUTEROL
     Route: 055
     Dates: start: 20180903
  9. ACETYLSALICYLIC ACID [Concomitant]
     Active Substance: ASPIRIN
     Indication: ISCHAEMIC HEART DISEASE PROPHYLAXIS
     Dosage: 1 DOSAGE FORMS DAILY;
     Dates: start: 20181003
  10. AMLODIPINE [Concomitant]
     Active Substance: AMLODIPINE BESYLATE
     Indication: HYPERTENSION
     Dosage: 1 DOSAGE FORMS DAILY; MORNING
     Dates: start: 20180806

REACTIONS (4)
  - Chest pain [Recovered/Resolved]
  - Hypoaesthesia [Recovered/Resolved]
  - Chest X-ray abnormal [Unknown]
  - Liver function test increased [Unknown]
